FAERS Safety Report 7738220-0 (Version None)
Quarter: 2011Q3

REPORT INFORMATION
  Report Type: 
  Country: None (occurrence: None)
  Receive Date: 20110908
  Receipt Date: 20110830
  Transmission Date: 20111222
  Serious: Yes (Other)
  Sender: FDA-Public Use
  Company Number: US-PURDUE-USA-2010-0050267

PATIENT
  Sex: Female

DRUGS (3)
  1. OXYCONTIN [Suspect]
     Indication: PAIN
     Dosage: 80 MG, BID
     Dates: start: 20100924
  2. OXYCONTIN [Suspect]
     Dosage: 90 MG, BID
     Dates: start: 20110501
  3. OXYCODONE HCL [Concomitant]
     Indication: BREAKTHROUGH PAIN
     Dosage: 15 MG, TID PRN

REACTIONS (6)
  - INTESTINAL OBSTRUCTION [None]
  - THERAPEUTIC RESPONSE DELAYED [None]
  - MEDICATION RESIDUE [None]
  - PAIN [None]
  - INADEQUATE ANALGESIA [None]
  - GASTROINTESTINAL NECROSIS [None]
